FAERS Safety Report 17191561 (Version 4)
Quarter: 2021Q1

REPORT INFORMATION
  Report Type: Spontaneous
  Country: US (occurrence: US)
  Receive Date: 20191223
  Receipt Date: 20210326
  Transmission Date: 20210419
  Serious: Yes (Other)
  Sender: FDA-Public Use
  Company Number: US-PFIZER INC-2019543873

PATIENT
  Age: 68 Year
  Sex: Female
  Weight: 68.95 kg

DRUGS (1)
  1. XELJANZ XR [Suspect]
     Active Substance: TOFACITINIB CITRATE
     Indication: RHEUMATOID ARTHRITIS
     Dosage: 11 MG, 1X/DAY(1 TABLET DAILY IN THE MORNING)

REACTIONS (8)
  - Fungal infection [Unknown]
  - Visual impairment [Unknown]
  - Vaginal discharge [Unknown]
  - Dermatitis allergic [Not Recovered/Not Resolved]
  - Uterine infection [Unknown]
  - Vaginal infection [Not Recovered/Not Resolved]
  - Herpes zoster [Unknown]
  - Bowel movement irregularity [Not Recovered/Not Resolved]

NARRATIVE: CASE EVENT DATE: 201912
